FAERS Safety Report 7671404-9 (Version None)
Quarter: 2011Q3

REPORT INFORMATION
  Report Type: 
  Country: None (occurrence: None)
  Receive Date: 20110809
  Receipt Date: 20110726
  Transmission Date: 20111222
  Serious: Yes (Other)
  Sender: FDA-Public Use
  Company Number: GB-ELI_LILLY_AND_COMPANY-GB201107004882

PATIENT
  Sex: Male

DRUGS (2)
  1. PROZAC [Suspect]
     Indication: DEPRESSION
     Dosage: UNK
     Dates: start: 20040201, end: 20040101
  2. ALCOHOL [Concomitant]

REACTIONS (14)
  - CONFUSIONAL STATE [None]
  - LACERATION [None]
  - COMA [None]
  - CONTUSION [None]
  - EYE SWELLING [None]
  - DRUG INEFFECTIVE [None]
  - ANXIETY [None]
  - INSOMNIA [None]
  - FLAT AFFECT [None]
  - ABNORMAL BEHAVIOUR [None]
  - AMNESIA [None]
  - ALCOHOL INTERACTION [None]
  - POOR QUALITY SLEEP [None]
  - PHYSICAL ASSAULT [None]
